FAERS Safety Report 18298652 (Version 5)
Quarter: 2022Q1

REPORT INFORMATION
  Report Type: Report from Study
  Country: US (occurrence: US)
  Receive Date: 20200922
  Receipt Date: 20220202
  Transmission Date: 20220423
  Serious: Yes (Death)
  Sender: FDA-Public Use
  Company Number: US-TAIHO ONCOLOGY INC-EU-2020-03385

PATIENT
  Age: 42 Year
  Sex: Male
  Weight: 60.836 kg

DRUGS (32)
  1. LONSURF [Suspect]
     Active Substance: TIPIRACIL HYDROCHLORIDE\TRIFLURIDINE
     Indication: Colon neoplasm
     Dosage: CURRENT CYCLE UNKNOWN
     Route: 048
     Dates: start: 20200812
  2. LONSURF [Suspect]
     Active Substance: TIPIRACIL HYDROCHLORIDE\TRIFLURIDINE
     Dosage: CYCLE 4
     Route: 048
     Dates: start: 20200826
  3. LONSURF [Suspect]
     Active Substance: TIPIRACIL HYDROCHLORIDE\TRIFLURIDINE
     Dosage: DOSE, FREQUENCY AND CYCLE UNKNOWN
     Route: 048
     Dates: start: 20200608
  4. MS CONTIN [Concomitant]
     Active Substance: MORPHINE SULFATE
     Dates: start: 20200708
  5. HYDROCODONE [Concomitant]
     Active Substance: HYDROCODONE
     Dosage: 10/325 MG
  6. COMPAZINE [Concomitant]
     Active Substance: PROCHLORPERAZINE MALEATE
  7. SENOKOT [Concomitant]
     Active Substance: SENNOSIDES
     Dates: start: 20200610
  8. OXYCONTIN [Concomitant]
     Active Substance: OXYCODONE HYDROCHLORIDE
     Dates: start: 20200722
  9. PERCOCET [Concomitant]
     Active Substance: ACETAMINOPHEN\OXYCODONE HYDROCHLORIDE
     Dosage: 10-325 MG
     Dates: start: 20200722
  10. PROMETHAZINE [Concomitant]
     Active Substance: PROMETHAZINE HYDROCHLORIDE
     Dates: start: 20200722
  11. TRANSDERM SCOP [Concomitant]
     Active Substance: SCOPOLAMINE
     Dates: start: 20200722
  12. NARCAN [Concomitant]
     Active Substance: NALOXONE HYDROCHLORIDE
     Dates: start: 20200708
  13. MEGESTROL [Concomitant]
     Active Substance: MEGESTROL
     Dosage: 400 MG/10
     Dates: start: 20200707
  14. ACETAMINOPHEN\HYDROCODONE [Concomitant]
     Active Substance: ACETAMINOPHEN\HYDROCODONE
     Dosage: 10-325 MG
     Dates: start: 20200701
  15. ACETAMINOPHEN\HYDROCODONE [Concomitant]
     Active Substance: ACETAMINOPHEN\HYDROCODONE
     Dosage: 5-325 MG
     Dates: start: 20200318
  16. TRAMADOL [Concomitant]
     Active Substance: TRAMADOL
     Dates: start: 20200605
  17. LOMOTIL [Concomitant]
     Active Substance: ATROPINE SULFATE\DIPHENOXYLATE HYDROCHLORIDE
     Dosage: 2.5-0.025
     Dates: start: 20200110
  18. ATROPINE [Concomitant]
     Active Substance: ATROPINE
     Dates: start: 20191227
  19. ATROPINE [Concomitant]
     Active Substance: ATROPINE
     Dates: start: 20191206
  20. FOSAPREPITANT [Concomitant]
     Active Substance: FOSAPREPITANT
     Dates: start: 20191227
  21. FOSAPREPITANT [Concomitant]
     Active Substance: FOSAPREPITANT
     Dates: start: 20191206
  22. PALONOSETRON [Concomitant]
     Active Substance: PALONOSETRON
     Dates: start: 20191227
  23. PALONOSETRON [Concomitant]
     Active Substance: PALONOSETRON
     Dates: start: 20191206
  24. DEXAMETHASONE [Concomitant]
     Active Substance: DEXAMETHASONE
     Dates: start: 20191227
  25. DEXAMETHASONE [Concomitant]
     Active Substance: DEXAMETHASONE
     Dates: start: 20191206
  26. CARISOPRODOL [Concomitant]
     Active Substance: CARISOPRODOL
     Dates: start: 20191216
  27. NEULASTA [Concomitant]
     Active Substance: PEGFILGRASTIM
     Dates: start: 20191206
  28. HEPARIN [Concomitant]
     Active Substance: HEPARIN SODIUM
     Dates: start: 20191115
  29. INFLUENZA VIRUS VACCINE [Concomitant]
     Active Substance: INFLUENZA VIRUS VACCINE
  30. ZOFRAN [Concomitant]
     Active Substance: ONDANSETRON HYDROCHLORIDE
     Dates: start: 20191115
  31. PROCHLORPERAZINE MALEATE [Concomitant]
     Active Substance: PROCHLORPERAZINE MALEATE
     Dates: start: 20191115
  32. XELODA [Concomitant]
     Active Substance: CAPECITABINE
     Dates: start: 20191115

REACTIONS (10)
  - Disease progression [Fatal]
  - Hypovolaemia [Unknown]
  - Weight decreased [Unknown]
  - Pain [Unknown]
  - Asthenia [Unknown]
  - Fatigue [Unknown]
  - Vomiting [Unknown]
  - Malaise [Unknown]
  - Inappropriate schedule of product administration [Unknown]
  - Product dose omission in error [Unknown]

NARRATIVE: CASE EVENT DATE: 20200101
